FAERS Safety Report 25896406 (Version 1)
Quarter: 2025Q4

REPORT INFORMATION
  Report Type: Spontaneous
  Country: JP (occurrence: JP)
  Receive Date: 20251008
  Receipt Date: 20251008
  Transmission Date: 20260118
  Serious: Yes (Hospitalization)
  Sender: ABBVIE
  Company Number: JP-ABBVIE-6491170

PATIENT

DRUGS (1)
  1. RINVOQ [Suspect]
     Active Substance: UPADACITINIB
     Indication: Rheumatoid arthritis
     Route: 048

REACTIONS (20)
  - Urinary tract infection [Unknown]
  - Drug interaction [Unknown]
  - Respiratory tract infection [Unknown]
  - Drug ineffective [Unknown]
  - Blood creatinine increased [Unknown]
  - Haemoglobin abnormal [Unknown]
  - Herpes zoster [Unknown]
  - Aspartate aminotransferase abnormal [Unknown]
  - Pyrexia [Unknown]
  - White blood cell count abnormal [Unknown]
  - Blood creatine phosphokinase increased [Unknown]
  - Oral herpes [Unknown]
  - Dysphoria [Unknown]
  - COVID-19 [Unknown]
  - Blood creatine phosphokinase abnormal [Unknown]
  - Stomatitis [Unknown]
  - Neutrophil count abnormal [Unknown]
  - Malaise [Unknown]
  - Therapeutic product effect decreased [Unknown]
  - Hospitalisation [Unknown]
